FAERS Safety Report 5786144-0 (Version None)
Quarter: 2008Q2

REPORT INFORMATION
  Report Type: 
  Country: None (occurrence: None)
  Receive Date: 20080624
  Receipt Date: 20080624
  Transmission Date: 20081010
  Serious: Yes (Other)
  Sender: FDA-Public Use
  Company Number: A0734443A

PATIENT
  Age: 47 Year
  Sex: Female
  Weight: 84.5 kg

DRUGS (4)
  1. ALLI [Suspect]
     Route: 048
     Dates: start: 20080621, end: 20080621
  2. ALTACE [Concomitant]
  3. EFFEXOR [Concomitant]
  4. MULTI-VITAMIN [Concomitant]

REACTIONS (3)
  - DIARRHOEA [None]
  - FREQUENT BOWEL MOVEMENTS [None]
  - RECTAL HAEMORRHAGE [None]
